FAERS Safety Report 8558037-7 (Version None)
Quarter: 2012Q3

REPORT INFORMATION
  Report Type: 
  Country: None (occurrence: None)
  Receive Date: 20120801
  Receipt Date: 20120719
  Transmission Date: 20120928
  Serious: Yes (Hospitalization)
  Sender: FDA-Public Use
  Company Number: US-PFIZER INC-2012185139

PATIENT
  Age: 79 Year
  Sex: Male

DRUGS (4)
  1. RAPAMUNE [Suspect]
     Indication: IMMUNOSUPPRESSION
     Route: 048
  2. PENTAMIDINE [Suspect]
     Indication: INFECTION PROPHYLAXIS
     Route: 045
  3. CYCLOSPORINE [Suspect]
     Indication: IMMUNOSUPPRESSION
     Route: 048
  4. THYMOGLOBULIN [Suspect]
     Indication: IMMUNOSUPPRESSION
     Route: 042

REACTIONS (1)
  - BRONCHOSPASM [None]
